FAERS Safety Report 9059684 (Version 1)
Quarter: 2013Q1

REPORT INFORMATION
  Report Type: Spontaneous
  Country: US (occurrence: None)
  Receive Date: 20130206
  Receipt Date: 20130206
  Transmission Date: 20140127
  Serious: Yes (Hospitalization)
  Sender: FDA-Public Use
  Company Number: None

PATIENT
  Age: 74 Year
  Sex: Male
  Weight: 87.8 kg

DRUGS (1)
  1. CIPROFLOXACIN [Suspect]
     Route: 048
     Dates: start: 20130124, end: 20130131

REACTIONS (4)
  - Hyponatraemia [None]
  - Nausea [None]
  - Vomiting [None]
  - Diarrhoea [None]
